FAERS Safety Report 7746371-X (Version None)
Quarter: 2011Q3

REPORT INFORMATION
  Report Type: 
  Country: None (occurrence: None)
  Receive Date: 20110912
  Receipt Date: 20110912
  Transmission Date: 20111222
  Serious: Yes (Hospitalization)
  Sender: FDA-Public Use
  Company Number: None

PATIENT
  Age: 60 Year
  Sex: Male
  Weight: 89.3 kg

DRUGS (1)
  1. ARIPIPRAZOLE [Suspect]
     Indication: BIPOLAR I DISORDER
     Dosage: 15 MG EVERY DAY PO
     Route: 048
     Dates: start: 20110802, end: 20110905

REACTIONS (6)
  - TREMOR [None]
  - PHARYNGOESOPHAGEAL DIVERTICULUM [None]
  - TOOTHACHE [None]
  - DYSPHAGIA [None]
  - SALIVARY HYPERSECRETION [None]
  - GINGIVAL PAIN [None]
